FAERS Safety Report 10442706 (Version 1)
Quarter: 2014Q3

REPORT INFORMATION
  Report Type: Spontaneous
  Country: IT (occurrence: None)
  Receive Date: 20140908
  Receipt Date: 20140908
  Transmission Date: 20150326
  Serious: Yes (Hospitalization)
  Sender: FDA-Public Use
  Company Number: 2014IT0365

PATIENT
  Age: 8 Year
  Sex: Male

DRUGS (2)
  1. KINERET [Suspect]
     Active Substance: ANAKINRA
     Indication: JUVENILE IDIOPATHIC ARTHRITIS
     Route: 058
     Dates: start: 20140529, end: 20140616
  2. DELTACORTENE (PREDNISONE) [Concomitant]
     Active Substance: PREDNISONE

REACTIONS (6)
  - Pyrexia [None]
  - Pruritus [None]
  - Erythema [None]
  - Injection site reaction [None]
  - Skin lesion [None]
  - Dermatitis [None]

NARRATIVE: CASE EVENT DATE: 20140612
